FAERS Safety Report 10757673 (Version 1)
Quarter: 2015Q1

REPORT INFORMATION
  Report Type: Spontaneous
  Country: US (occurrence: None)
  Receive Date: 20150202
  Receipt Date: 20150202
  Transmission Date: 20150721
  Serious: Yes (Other)
  Sender: FDA-Public Use
  Company Number: None

PATIENT
  Age: 4 Year
  Sex: Male
  Weight: 15.42 kg

DRUGS (2)
  1. CHILDRENS MUCINEX COUGH [Suspect]
     Active Substance: DEXTROMETHORPHAN HYDROBROMIDE\GUAIFENESIN
     Indication: COUGH
     Dates: start: 20150128, end: 20150129
  2. CHILDRENS MUCINEX COUGH [Suspect]
     Active Substance: DEXTROMETHORPHAN HYDROBROMIDE\GUAIFENESIN
     Indication: RESPIRATORY TRACT CONGESTION
     Dates: start: 20150128, end: 20150129

REACTIONS (6)
  - Chills [None]
  - Abdominal pain upper [None]
  - Unevaluable event [None]
  - Pyrexia [None]
  - Hallucination [None]
  - Nausea [None]

NARRATIVE: CASE EVENT DATE: 20150129
